FAERS Safety Report 23986555 (Version 1)
Quarter: 2024Q2

REPORT INFORMATION
  Report Type: Spontaneous
  Country: US (occurrence: US)
  Receive Date: 20240618
  Receipt Date: 20240618
  Transmission Date: 20240716
  Serious: No
  Sender: FDA-Public Use
  Company Number: US-TEVA-VS-3207905

PATIENT
  Sex: Female
  Weight: 143 kg

DRUGS (13)
  1. HYDROCHLOROTHIAZIDE [Suspect]
     Active Substance: HYDROCHLOROTHIAZIDE
     Indication: Product used for unknown indication
     Route: 065
  2. LEVOTHYROXINE [Suspect]
     Active Substance: LEVOTHYROXINE\LEVOTHYROXINE SODIUM
     Indication: Product used for unknown indication
     Route: 065
  3. LEVOTHYROXINE [Suspect]
     Active Substance: LEVOTHYROXINE\LEVOTHYROXINE SODIUM
     Indication: Product used for unknown indication
     Dosage: 75MCG WITH 50MCG EVERY DAY
     Route: 065
  4. LENVIMA [Suspect]
     Active Substance: LENVATINIB
     Indication: Renal cancer
     Route: 065
     Dates: start: 20230721
  5. VITAMIN D3 [Concomitant]
     Active Substance: CHOLECALCIFEROL
     Indication: Product used for unknown indication
     Route: 065
  6. MORPHINE SULFATE [Concomitant]
     Active Substance: MORPHINE SULFATE
     Indication: Product used for unknown indication
     Route: 065
  7. Hydrocodone-Acteaminophen, [Concomitant]
     Indication: Product used for unknown indication
     Dosage: UNKNOWN
     Route: 065
  8. Metformin HCL ER 750mg Tab ER 24H, [Concomitant]
     Indication: Product used for unknown indication
     Route: 065
  9. Irbesartan 300mg Tab [Concomitant]
     Indication: Product used for unknown indication
     Route: 065
  10. Amlodipine Besylate 10mg Tab, [Concomitant]
     Indication: Product used for unknown indication
     Route: 065
  11. Keytrudia 100mg/4ml vial [Concomitant]
     Indication: Product used for unknown indication
     Dosage: 100MG/4ML VIAL
     Route: 065
  12. low dose Aspirin EC 81mg Tab DR [Concomitant]
     Indication: Product used for unknown indication
     Route: 065
  13. Simvastatin 20mg Tab. [Concomitant]
     Indication: Product used for unknown indication
     Route: 065

REACTIONS (3)
  - Abdominal pain upper [Unknown]
  - Feeling abnormal [Unknown]
  - Blood thyroid stimulating hormone [Unknown]
